FAERS Safety Report 10046852 (Version 1)
Quarter: 2014Q1

REPORT INFORMATION
  Report Type: Report from Study
  Country: CZ (occurrence: CZ)
  Receive Date: 20140331
  Receipt Date: 20140331
  Transmission Date: 20141002
  Serious: Yes (Other)
  Sender: FDA-Public Use
  Company Number: CZ-ROCHE-1374236

PATIENT
  Sex: 0

DRUGS (1)
  1. INTERFERON ALFA-2A [Suspect]
     Indication: CHRONIC MYELOID LEUKAEMIA
     Route: 058

REACTIONS (11)
  - Parkinsonism [Unknown]
  - Radiculitis [Unknown]
  - Depression [Unknown]
  - Drug intolerance [Unknown]
  - Treatment failure [Unknown]
  - Influenza like illness [Unknown]
  - Decreased appetite [Unknown]
  - Weight decreased [Unknown]
  - Insomnia [Unknown]
  - Dermatitis allergic [Unknown]
  - Hepatotoxicity [Unknown]
